FAERS Safety Report 7548715-0 (Version None)
Quarter: 2011Q2

REPORT INFORMATION
  Report Type: 
  Country: None (occurrence: None)
  Receive Date: 20110615
  Receipt Date: 20110607
  Transmission Date: 20111010
  Serious: Yes (Death, Hospitalization)
  Sender: FDA-Public Use
  Company Number: US-SANOFI-AVENTIS-2011SA036816

PATIENT
  Age: 36 Year
  Sex: Female

DRUGS (2)
  1. INSULIN LISPRO [Suspect]
     Route: 058
  2. LANTUS [Suspect]
     Route: 058

REACTIONS (2)
  - CHRONIC HEPATIC FAILURE [None]
  - HYPOGLYCAEMIA [None]
